FAERS Safety Report 6984728-5 (Version None)
Quarter: 2010Q3

REPORT INFORMATION
  Report Type: 
  Country: None (occurrence: None)
  Receive Date: 20100915
  Receipt Date: 20100913
  Transmission Date: 20110219
  Serious: Yes (Death, Hospitalization)
  Sender: FDA-Public Use
  Company Number: DE-SANOFI-AVENTIS-2010SA054597

PATIENT
  Age: 73 Year
  Sex: Female

DRUGS (10)
  1. DOCETAXEL [Suspect]
     Indication: BREAST CANCER
     Route: 041
     Dates: start: 20060829, end: 20060829
  2. DOCETAXEL [Suspect]
     Route: 041
     Dates: start: 20061010, end: 20061010
  3. GEMCITABINE [Suspect]
     Indication: BREAST CANCER
     Route: 041
     Dates: start: 20060829, end: 20060829
  4. GEMCITABINE [Suspect]
     Route: 041
     Dates: start: 20061010, end: 20061010
  5. FLUOROURACIL [Suspect]
     Indication: BREAST CANCER
     Route: 041
     Dates: start: 20060601, end: 20060601
  6. FLUOROURACIL [Suspect]
     Route: 041
     Dates: start: 20060807, end: 20060807
  7. EPIRUBICIN [Suspect]
     Indication: BREAST CANCER
     Route: 041
     Dates: start: 20060601, end: 20060601
  8. EPIRUBICIN [Suspect]
     Route: 041
     Dates: start: 20060807, end: 20060807
  9. CYCLOPHOSPHAMIDE [Suspect]
     Indication: BREAST CANCER
     Route: 041
     Dates: start: 20060601, end: 20060601
  10. CYCLOPHOSPHAMIDE [Suspect]
     Route: 041
     Dates: start: 20060807, end: 20060807

REACTIONS (1)
  - ACUTE MYELOID LEUKAEMIA [None]
